FAERS Safety Report 26092165 (Version 1)
Quarter: 2025Q4

REPORT INFORMATION
  Report Type: Spontaneous
  Country: US (occurrence: US)
  Receive Date: 20251126
  Receipt Date: 20251126
  Transmission Date: 20260119
  Serious: No
  Sender: MANKIND PHARMA
  Company Number: US-MANKIND PHARMA LIMITED-2025-US-00036

PATIENT

DRUGS (5)
  1. ARFORMOTEROL [Suspect]
     Active Substance: ARFORMOTEROL
     Indication: Chronic obstructive pulmonary disease
     Dosage: UNK
     Route: 065
     Dates: start: 20251003, end: 20251006
  2. ARFORMOTEROL [Suspect]
     Active Substance: ARFORMOTEROL
     Dosage: UNK
     Route: 065
     Dates: start: 20251006
  3. ARFORMOTEROL [Suspect]
     Active Substance: ARFORMOTEROL
     Dosage: UNK
     Route: 065
  4. BUDESONIDE [Concomitant]
     Active Substance: BUDESONIDE
     Indication: Product used for unknown indication
  5. IPRATROPIUM [Concomitant]
     Active Substance: IPRATROPIUM
     Indication: Product used for unknown indication

REACTIONS (4)
  - Dyspnoea [Recovered/Resolved]
  - Poor quality product administered [Unknown]
  - Product quality issue [Unknown]
  - Product temperature excursion issue [Unknown]

NARRATIVE: CASE EVENT DATE: 20251001
